FAERS Safety Report 17838457 (Version 28)
Quarter: 2022Q2

REPORT INFORMATION
  Report Type: Report from Study
  Country: CA (occurrence: CA)
  Receive Date: 20200528
  Receipt Date: 20220405
  Transmission Date: 20220721
  Serious: Yes (Other)
  Sender: FDA-Public Use
  Company Number: PHHY2017CA071885

PATIENT
  Sex: Female

DRUGS (29)
  1. SANDOSTATIN LAR DEPOT [Suspect]
     Active Substance: OCTREOTIDE ACETATE
     Indication: Acromegaly
     Dosage: 10 MG, Q3W
     Route: 030
     Dates: start: 20020601
  2. SANDOSTATIN LAR DEPOT [Suspect]
     Active Substance: OCTREOTIDE ACETATE
     Dosage: UNK UNK, PRN
     Route: 030
     Dates: start: 200206
  3. SANDOSTATIN LAR DEPOT [Suspect]
     Active Substance: OCTREOTIDE ACETATE
     Dosage: 20 MG, TIW
     Route: 030
  4. SANDOSTATIN LAR DEPOT [Suspect]
     Active Substance: OCTREOTIDE ACETATE
     Dosage: 10 MG, Q3W (EVERY 3 WEEKS)
     Route: 030
  5. SANDOSTATIN LAR DEPOT [Suspect]
     Active Substance: OCTREOTIDE ACETATE
     Dosage: 10 MG (EVERY 6 WEEKS)
     Route: 030
     Dates: start: 20150710
  6. SANDOSTATIN LAR DEPOT [Suspect]
     Active Substance: OCTREOTIDE ACETATE
     Dosage: UNK UNK, PRN
     Route: 030
     Dates: start: 201603
  7. SANDOSTATIN LAR DEPOT [Suspect]
     Active Substance: OCTREOTIDE ACETATE
     Dosage: 10 MG
     Route: 030
  8. SANDOSTATIN LAR DEPOT [Suspect]
     Active Substance: OCTREOTIDE ACETATE
     Dosage: 10 MG (EVERY 6 WEEKS)
     Route: 030
  9. SANDOSTATIN LAR DEPOT [Suspect]
     Active Substance: OCTREOTIDE ACETATE
     Dosage: 10 MG (EVERY 6 WEEKS)
     Route: 030
     Dates: start: 20181221
  10. SANDOSTATIN LAR DEPOT [Suspect]
     Active Substance: OCTREOTIDE ACETATE
     Dosage: 10 MG, QMO
     Route: 030
  11. SANDOSTATIN LAR DEPOT [Suspect]
     Active Substance: OCTREOTIDE ACETATE
     Dosage: 10 MG, Q3W (EVERY 3 WEEKS)
     Route: 030
  12. SANDOSTATIN LAR DEPOT [Suspect]
     Active Substance: OCTREOTIDE ACETATE
     Dosage: UNK
     Route: 065
     Dates: start: 20200501
  13. SANDOSTATIN LAR DEPOT [Suspect]
     Active Substance: OCTREOTIDE ACETATE
     Dosage: 10 MG, Q3W (EVERY 3 WEEKS)
     Route: 030
  14. SANDOSTATIN LAR DEPOT [Suspect]
     Active Substance: OCTREOTIDE ACETATE
     Dosage: 10 MG, Q3W (EVERY 3 WEEKS)
     Route: 030
     Dates: start: 20201016
  15. SANDOSTATIN [Suspect]
     Active Substance: OCTREOTIDE ACETATE
     Indication: Acromegaly
     Dosage: UNK UNK, PRN
     Route: 058
     Dates: start: 2002
  16. SANDOSTATIN [Suspect]
     Active Substance: OCTREOTIDE ACETATE
     Dosage: UNK UNK, PRN
     Route: 058
     Dates: start: 2016
  17. SANDOSTATIN [Suspect]
     Active Substance: OCTREOTIDE ACETATE
  18. HARVONI [Concomitant]
     Active Substance: LEDIPASVIR\SOFOSBUVIR
     Indication: Hepatitis
     Dosage: UNK
     Route: 048
     Dates: start: 20161205
  19. NADOLOL [Concomitant]
     Active Substance: NADOLOL
     Indication: Varices oesophageal
     Dosage: UNK UNK, QD
     Route: 048
     Dates: start: 201708
  20. RIBAVIRIN [Concomitant]
     Active Substance: RIBAVIRIN
     Indication: Product used for unknown indication
     Dosage: UNK
     Route: 065
  21. INDAPAMIDE\PERINDOPRIL [Concomitant]
     Active Substance: INDAPAMIDE\PERINDOPRIL
     Indication: Blood pressure measurement
     Dosage: 1 DF, QD (STRENGTH 4.76-11.25 MG)
     Route: 048
     Dates: start: 202101, end: 2021
  22. INDAPAMIDE\PERINDOPRIL [Concomitant]
     Active Substance: INDAPAMIDE\PERINDOPRIL
     Dosage: 4 MG
     Route: 065
  23. INDAPAMIDE\PERINDOPRIL [Concomitant]
     Active Substance: INDAPAMIDE\PERINDOPRIL
     Dosage: 8 MG
     Route: 065
     Dates: start: 202102
  24. INTERFERON [Concomitant]
     Active Substance: INTERFERON
     Indication: Product used for unknown indication
     Dosage: UNK
     Route: 065
  25. TELAPREVIR [Concomitant]
     Active Substance: TELAPREVIR
     Indication: Product used for unknown indication
     Dosage: UNK
     Route: 065
  26. ASPIRIN [Concomitant]
     Active Substance: ASPIRIN
     Indication: Product used for unknown indication
     Dosage: UNK
     Route: 065
  27. INDAPAMIDE [Concomitant]
     Active Substance: INDAPAMIDE
     Indication: Product used for unknown indication
     Dosage: 1 DF, QD
     Route: 048
     Dates: start: 2021
  28. PERINDOPRIL ERBUMINE [Concomitant]
     Active Substance: PERINDOPRIL ERBUMINE
     Indication: Product used for unknown indication
     Dosage: 1 DF, QD
     Route: 048
     Dates: start: 2021
  29. AMOXICILLIN [Concomitant]
     Active Substance: AMOXICILLIN
     Indication: Injection
     Dosage: 500 MG, TID
     Route: 065
     Dates: start: 20210915

REACTIONS (51)
  - Chest injury [Unknown]
  - Blood pressure systolic increased [Unknown]
  - Renal impairment [Unknown]
  - Headache [Unknown]
  - Bladder disorder [Unknown]
  - Nasopharyngitis [Unknown]
  - Viral infection [Unknown]
  - Chest pain [Unknown]
  - Chromaturia [Unknown]
  - Back pain [Unknown]
  - Eructation [Unknown]
  - Renal pain [Unknown]
  - Weight decreased [Unknown]
  - White blood cells urine positive [Unknown]
  - Fall [Unknown]
  - Foot fracture [Unknown]
  - Hypertension [Unknown]
  - Illness [Unknown]
  - Fracture pain [Unknown]
  - Peripheral swelling [Unknown]
  - Sensory loss [Unknown]
  - Eosinophil count decreased [Unknown]
  - Weight increased [Unknown]
  - Abnormal faeces [Unknown]
  - Bone pain [Unknown]
  - Muscular weakness [Unknown]
  - Contusion [Unknown]
  - Cardiac disorder [Unknown]
  - Bladder mass [Unknown]
  - Lymphocyte count decreased [Unknown]
  - White blood cell count decreased [Unknown]
  - Blood growth hormone increased [Unknown]
  - Burning sensation [Unknown]
  - Blood thyroid stimulating hormone increased [Unknown]
  - Nausea [Unknown]
  - Abdominal pain lower [Unknown]
  - Thyroid hormones decreased [Unknown]
  - Vomiting [Unknown]
  - Asthenia [Unknown]
  - Abdominal distension [Unknown]
  - Dizziness [Unknown]
  - Platelet count decreased [Unknown]
  - Diarrhoea [Unknown]
  - Myalgia [Unknown]
  - Arthralgia [Unknown]
  - Blood parathyroid hormone increased [Unknown]
  - Product packaging issue [Unknown]
  - Decreased immune responsiveness [Unknown]
  - Post procedural infection [Unknown]
  - Injection site pain [Recovering/Resolving]
  - Inappropriate schedule of product administration [Unknown]

NARRATIVE: CASE EVENT DATE: 20170101
